FAERS Safety Report 9258106 (Version 2)
Quarter: 2013Q2

REPORT INFORMATION
  Report Type: Report from Study
  Country: US (occurrence: US)
  Receive Date: 20130426
  Receipt Date: 20130529
  Transmission Date: 20140414
  Serious: Yes (Other)
  Sender: FDA-Public Use
  Company Number: US-PURDUE-USA-2013-0101421

PATIENT
  Age: 38 Year
  Sex: Female
  Weight: 38.1 kg

DRUGS (3)
  1. OXYCONTIN (NDA 22-272) [Suspect]
     Indication: NEOPLASM MALIGNANT
     Dosage: 40 MG, Q12H
     Route: 048
  2. OXYCONTIN (NDA 22-272) [Suspect]
     Indication: CANCER PAIN
     Dosage: 40 MG, Q8H
     Route: 048
  3. OXYCONTIN (NDA 22-272) [Suspect]
     Dosage: 60 MG, Q8H
     Route: 048
     Dates: start: 20130403

REACTIONS (3)
  - Malignant neoplasm progression [Not Recovered/Not Resolved]
  - Metastases to bone [Unknown]
  - Pain [Not Recovered/Not Resolved]
